FAERS Safety Report 23753720 (Version 1)
Quarter: 2024Q2

REPORT INFORMATION
  Report Type: Spontaneous
  Country: US (occurrence: US)
  Receive Date: 20240417
  Receipt Date: 20240417
  Transmission Date: 20240716
  Serious: Yes (Hospitalization, Other)
  Sender: FDA-Public Use
  Company Number: US-SUN PHARMACEUTICAL INDUSTRIES LTD-2024R1-441736

PATIENT
  Age: 29 Year
  Sex: Female

DRUGS (4)
  1. FENOFIBRATE [Suspect]
     Active Substance: FENOFIBRATE
     Indication: Hypertriglyceridaemia
     Dosage: 145 MILLIGRAM, QD
     Route: 065
  2. ROSUVASTATIN [Suspect]
     Active Substance: ROSUVASTATIN
     Indication: Hypertriglyceridaemia
     Dosage: 20 MILLIGRAM, QD
     Route: 065
  3. INSULIN NOS [Suspect]
     Active Substance: INSULIN NOS
     Indication: Pancreatitis acute
     Dosage: UNK
     Route: 065
  4. ICOSAPENT ETHYL [Suspect]
     Active Substance: ICOSAPENT ETHYL
     Indication: Hypertriglyceridaemia
     Dosage: 2 GRAM, BID
     Route: 065

REACTIONS (5)
  - Disease progression [Unknown]
  - Drug ineffective [Unknown]
  - Distributive shock [Unknown]
  - Foetal death [Unknown]
  - Exposure during pregnancy [Unknown]
